FAERS Safety Report 5742135-7 (Version None)
Quarter: 2008Q2

REPORT INFORMATION
  Report Type: 
  Country: None (occurrence: None)
  Receive Date: 20080514
  Receipt Date: 20080303
  Transmission Date: 20081010
  Serious: Yes (Other)
  Sender: FDA-Public Use
  Company Number: US200803000984

PATIENT
  Age: 68 Year
  Sex: Female
  Weight: 62.6 kg

DRUGS (3)
  1. KEFLEX [Suspect]
     Indication: KIDNEY INFECTION
     Dosage: 1 EVERY 6 HRS. ORAL
     Route: 048
     Dates: start: 20030619, end: 20030622
  2. ACCUPRIL [Concomitant]
  3. LEVOTHROID [Concomitant]

REACTIONS (2)
  - ERYTHEMA [None]
  - VASCULITIS [None]
